FAERS Safety Report 6850143-8 (Version None)
Quarter: 2010Q3

REPORT INFORMATION
  Report Type: 
  Country: None (occurrence: None)
  Receive Date: 20100716
  Receipt Date: 20071010
  Transmission Date: 20110219
  Serious: No
  Sender: FDA-Public Use
  Company Number: US-PFIZER INC-2007086614

PATIENT
  Sex: Female
  Weight: 58.5 kg

DRUGS (5)
  1. CHANTIX [Suspect]
     Indication: SMOKING CESSATION THERAPY
     Dates: start: 20070925
  2. CALCIUM [Concomitant]
  3. ALL OTHER THERAPEUTIC PRODUCTS [Concomitant]
  4. ACETYLSALICYLIC ACID [Concomitant]
  5. FIBRE, DIETARY [Concomitant]

REACTIONS (3)
  - ABNORMAL DREAMS [None]
  - INITIAL INSOMNIA [None]
  - NAUSEA [None]
